FAERS Safety Report 18380364 (Version 3)
Quarter: 2021Q4

REPORT INFORMATION
  Report Type: Other
  Country: US (occurrence: None)
  Receive Date: 20201013
  Receipt Date: 20211105
  Transmission Date: 20220303
  Serious: Yes (Hospitalization, Other)
  Sender: FDA-Public Use
  Company Number: US-ROCHE-2689462

PATIENT
  Sex: Female
  Weight: 70.370 kg

DRUGS (19)
  1. OCREVUS [Suspect]
     Active Substance: OCRELIZUMAB
     Indication: Relapsing-remitting multiple sclerosis
     Route: 042
     Dates: start: 20171230
  2. OCREVUS [Suspect]
     Active Substance: OCRELIZUMAB
     Indication: Secondary progressive multiple sclerosis
     Dosage: FULL-DOSE?DOT- 28/APR/2021?INFUSE EVERY 6 MONTHS
     Route: 042
     Dates: start: 2018
  3. OCREVUS [Suspect]
     Active Substance: OCRELIZUMAB
     Dosage: ONGOING NO?STARTED LATE DEC-2017 AND SECOND HALF DOSE EARLY JAN-2018
     Route: 042
     Dates: start: 201712, end: 201801
  4. CHANTIX [Suspect]
     Active Substance: VARENICLINE TARTRATE
     Indication: Ex-tobacco user
     Route: 048
     Dates: start: 2019
  5. ALPRAZOLAM [Concomitant]
     Active Substance: ALPRAZOLAM
     Indication: Anxiety
     Dosage: AS NEEDED
     Route: 048
     Dates: start: 1998
  6. PREGABALIN [Concomitant]
     Active Substance: PREGABALIN
     Indication: Fibromyalgia
     Dosage: STARTED ABOUT 5 YEARS AGO AND TAKES AS NEEDED
     Route: 048
  7. ESTRADIOL [Concomitant]
     Active Substance: ESTRADIOL
     Indication: Hormone replacement therapy
     Route: 048
     Dates: start: 1989
  8. ANORO ELLIPTA [Concomitant]
     Active Substance: UMECLIDINIUM BROMIDE\VILANTEROL TRIFENATATE
     Indication: Chronic obstructive pulmonary disease
     Route: 055
     Dates: start: 201705
  9. ANORO ELLIPTA [Concomitant]
     Active Substance: UMECLIDINIUM BROMIDE\VILANTEROL TRIFENATATE
     Dosage: STARTED PROBABLY NOV-2017 TAKES 1 PUFF ONCE A DAY
     Route: 055
     Dates: start: 201711
  10. VIIBRYD [Concomitant]
     Active Substance: VILAZODONE HYDROCHLORIDE
     Indication: Depression
     Route: 048
     Dates: start: 2018
  11. OXYBUTYNIN CHLORIDE [Concomitant]
     Active Substance: OXYBUTYNIN CHLORIDE
     Indication: Urge incontinence
     Route: 048
     Dates: start: 2018
  12. TIZANIDINE [Concomitant]
     Active Substance: TIZANIDINE
     Indication: Muscle spasms
     Dosage: OFF AND ON SINCE 1988 AT BEDTIME AS NEEDED
     Route: 048
     Dates: start: 1988
  13. ROBAXIN [Concomitant]
     Active Substance: METHOCARBAMOL
     Indication: Muscle spasms
     Dosage: AS NEEDED OFF AND ON
     Route: 048
     Dates: start: 1989
  14. PRAVASTATIN [Concomitant]
     Active Substance: PRAVASTATIN
     Indication: Blood cholesterol increased
     Dosage: STARTED ABOUT 4 MONTHS AGO
     Route: 048
     Dates: start: 2021
  15. DITROPAN XL [Concomitant]
     Active Substance: OXYBUTYNIN CHLORIDE
     Indication: Urge incontinence
     Dosage: STARTED ABOUT 5 YEARS AGO
     Route: 048
  16. MELOXICAM [Concomitant]
     Active Substance: MELOXICAM
     Indication: Arthralgia
     Dosage: AS NEEDED STARTED ABOUT 2 YEARS AGO
     Route: 048
  17. ALLEGRA [Concomitant]
     Active Substance: FEXOFENADINE HYDROCHLORIDE
     Indication: Hypersensitivity
     Dosage: START DATE IN EARLY 1980S AND TAKING IT ON AND OFF
     Route: 048
  18. VITAMIN D3 [Concomitant]
     Active Substance: CHOLECALCIFEROL
     Dosage: STARTED ABOUT 20 YEARS AGO
     Route: 048
  19. SINGULAIR [Concomitant]
     Active Substance: MONTELUKAST SODIUM
     Indication: Chronic obstructive pulmonary disease
     Dosage: STARTED ABOUT STARTED ABOUT 3 MONTHS AGO 3 MONTHS AGO
     Route: 048
     Dates: start: 2021

REACTIONS (18)
  - Pneumonia [Recovered/Resolved]
  - Chronic obstructive pulmonary disease [Not Recovered/Not Resolved]
  - Multiple sclerosis [Unknown]
  - Suicidal ideation [Recovered/Resolved]
  - Colon adenoma [Recovered/Resolved]
  - Anal incontinence [Recovered/Resolved]
  - Dysphagia [Recovered/Resolved]
  - Alopecia [Recovering/Resolving]
  - Polyp [Recovered/Resolved]
  - Weight increased [Not Recovered/Not Resolved]
  - Nausea [Not Recovered/Not Resolved]
  - Amnesia [Unknown]
  - Muscle spasms [Recovered/Resolved]
  - Infection [Not Recovered/Not Resolved]
  - Depression [Recovered/Resolved]
  - Blood cholesterol increased [Unknown]
  - Pruritus [Recovered/Resolved]
  - Tongue erythema [Recovered/Resolved]

NARRATIVE: CASE EVENT DATE: 20180101
